FAERS Safety Report 9221689 (Version 3)
Quarter: 2013Q3

REPORT INFORMATION
  Report Type: Spontaneous
  Country: US (occurrence: None)
  Receive Date: 20130408
  Receipt Date: 20130703
  Transmission Date: 20140515
  Serious: Yes (Hospitalization)
  Sender: FDA-Public Use
  Company Number: 147181

PATIENT
  Age: 59 Year
  Sex: Male
  Weight: 58 kg

DRUGS (1)
  1. LEUCOVORIN CALCIUM [Suspect]
     Indication: COLORECTAL CANCER METASTATIC
     Dosage: DAY 1 EVERY 14 DAYS
     Route: 042
     Dates: start: 20121127

REACTIONS (4)
  - Abdominal pain [None]
  - Nausea [None]
  - Fatigue [None]
  - Constipation [None]
